FAERS Safety Report 15578163 (Version 2)
Quarter: 2018Q4

REPORT INFORMATION
  Report Type: Spontaneous
  Country: CN (occurrence: CN)
  Receive Date: 20181102
  Receipt Date: 20181112
  Transmission Date: 20190205
  Serious: Yes (Hospitalization)
  Sender: FDA-Public Use
  Company Number: CN-ROCHE-2207196

PATIENT
  Age: 58 Year
  Sex: Female
  Weight: 50 kg

DRUGS (10)
  1. HERCEPTIN [Suspect]
     Active Substance: TRASTUZUMAB
     Indication: BREAST CANCER
     Dosage: 8 MG/KG
     Route: 041
     Dates: start: 20180505, end: 20180505
  2. DOCETAXEL. [Concomitant]
     Active Substance: DOCETAXEL
     Dosage: 120 MG X4
     Route: 065
  3. HERCEPTIN [Suspect]
     Active Substance: TRASTUZUMAB
     Route: 041
     Dates: start: 20180714
  4. GEMCITABINE HCL [Suspect]
     Active Substance: GEMCITABINE HYDROCHLORIDE
     Indication: BREAST CANCER
     Dosage: ON DAY 1 AND 8.
     Route: 065
     Dates: start: 20180714
  5. VINORELBINE TARTRATE. [Suspect]
     Active Substance: VINORELBINE TARTRATE
     Indication: BREAST CANCER
     Route: 048
     Dates: start: 20180421
  6. CISPLATIN. [Concomitant]
     Active Substance: CISPLATIN
     Indication: BREAST CANCER
     Route: 065
     Dates: start: 20180714
  7. CAPECITABINE. [Concomitant]
     Active Substance: CAPECITABINE
     Indication: BREAST CANCER
     Dosage: EVERY MORNING AND EVENING,D1-14
     Route: 048
     Dates: end: 20170918
  8. CAPECITABINE. [Concomitant]
     Active Substance: CAPECITABINE
     Route: 065
     Dates: end: 20171218
  9. DOCETAXEL. [Concomitant]
     Active Substance: DOCETAXEL
     Indication: BREAST CANCER
     Dosage: EACH MORNING AND EVENING, FOR 1-14.
     Route: 065
     Dates: end: 20170918
  10. HERCEPTIN [Suspect]
     Active Substance: TRASTUZUMAB
     Dosage: 6 MG/KG
     Route: 041
     Dates: start: 20180526, end: 20180526

REACTIONS (1)
  - Drug resistance [Unknown]
